FAERS Safety Report 24620784 (Version 1)
Quarter: 2024Q4

REPORT INFORMATION
  Report Type: Spontaneous
  Country: IT (occurrence: IT)
  Receive Date: 20241114
  Receipt Date: 20241114
  Transmission Date: 20250115
  Serious: Yes (Death, Other)
  Sender: ALEXION PHARMACEUTICALS
  Company Number: None

PATIENT
  Age: 71 Year
  Weight: 88 kg

DRUGS (8)
  1. TREMELIMUMAB [Suspect]
     Active Substance: TREMELIMUMAB
     Indication: Hepatocellular carcinoma
     Dosage: TREMELIMUMAB 300 MG EV DOSE SINGOLA
  2. TREMELIMUMAB [Suspect]
     Active Substance: TREMELIMUMAB
     Dosage: TREMELIMUMAB 300 MG EV DOSE SINGOLA
  3. TREMELIMUMAB [Suspect]
     Active Substance: TREMELIMUMAB
     Dosage: TREMELIMUMAB 300 MG EV DOSE SINGOLA
  4. TREMELIMUMAB [Suspect]
     Active Substance: TREMELIMUMAB
     Dosage: TREMELIMUMAB 300 MG EV DOSE SINGOLA
  5. DURVALUMAB [Suspect]
     Active Substance: DURVALUMAB
     Indication: Hepatocellular carcinoma
     Dosage: DURVALUMAB 1500 MG EV OGNI 28 GIORNI FINO A PROGRESSIONE DI MALATTIA
  6. DURVALUMAB [Suspect]
     Active Substance: DURVALUMAB
     Dosage: DURVALUMAB 1500 MG EV OGNI 28 GIORNI FINO A PROGRESSIONE DI MALATTIA
  7. DURVALUMAB [Suspect]
     Active Substance: DURVALUMAB
     Dosage: DURVALUMAB 1500 MG EV OGNI 28 GIORNI FINO A PROGRESSIONE DI MALATTIA
  8. DURVALUMAB [Suspect]
     Active Substance: DURVALUMAB
     Dosage: DURVALUMAB 1500 MG EV OGNI 28 GIORNI FINO A PROGRESSIONE DI MALATTIA

REACTIONS (2)
  - Autoimmune myositis [Fatal]
  - Autoimmune hepatitis [Fatal]
